FAERS Safety Report 7570767-2 (Version None)
Quarter: 2011Q2

REPORT INFORMATION
  Report Type: 
  Country: None (occurrence: None)
  Receive Date: 20110624
  Receipt Date: 20110616
  Transmission Date: 20111010
  Serious: Yes (Life-Threatening, Hospitalization, Other)
  Sender: FDA-Public Use
  Company Number: FR-ELI_LILLY_AND_COMPANY-FR201106004534

PATIENT
  Sex: Male

DRUGS (3)
  1. ALIMTA [Suspect]
     Indication: BRONCHIAL CARCINOMA
     Dosage: 500 MG/M2, UNKNOWN
     Route: 042
  2. CISPLATIN [Concomitant]
     Indication: BRONCHIAL CARCINOMA
     Dosage: 75 MG/M2, UNK
     Route: 042
     Dates: start: 20110414
  3. AVASTIN [Concomitant]
     Indication: BRONCHIAL CARCINOMA
     Dosage: 7.5 MG/KG, UNK
     Route: 042
     Dates: start: 20110414

REACTIONS (2)
  - SECONDARY IMMUNODEFICIENCY [None]
  - SEPTIC SHOCK [None]
